FAERS Safety Report 9267220 (Version 1)
Quarter: 2013Q2

REPORT INFORMATION
  Report Type: Report from Study
  Country: US (occurrence: US)
  Receive Date: 20130502
  Receipt Date: 20130502
  Transmission Date: 20140414
  Serious: No
  Sender: FDA-Public Use
  Company Number: PHEH2013US009716

PATIENT
  Age: 43 Year
  Sex: Female
  Weight: 71.2 kg

DRUGS (2)
  1. TASIGNA [Suspect]
     Indication: CHRONIC MYELOID LEUKAEMIA
     Dosage: 400 MG, BID
     Route: 048
     Dates: start: 20130329
  2. DEPOPROVERA [Concomitant]

REACTIONS (3)
  - Menstrual disorder [Not Recovered/Not Resolved]
  - Dry skin [Not Recovered/Not Resolved]
  - Alopecia [Not Recovered/Not Resolved]
